FAERS Safety Report 20629818 (Version 1)
Quarter: 2022Q1

REPORT INFORMATION
  Report Type: Spontaneous
  Country: TW (occurrence: TW)
  Receive Date: 20220324
  Receipt Date: 20220324
  Transmission Date: 20220424
  Serious: Yes (Other)
  Sender: FDA-Public Use
  Company Number: TW-STRIDES ARCOLAB LIMITED-2022SP003006

PATIENT
  Age: 38 Year
  Sex: Female

DRUGS (25)
  1. DEXAMETHASONE [Suspect]
     Active Substance: DEXAMETHASONE
     Indication: T-cell lymphoma stage II
     Dosage: UNK, (GRAALL 2003 REGIMEN)
     Route: 065
  2. PREDNISOLONE [Suspect]
     Active Substance: PREDNISOLONE
     Indication: T-cell lymphoma stage II
     Dosage: UNK, (GRAALL 2003 REGIMEN)
     Route: 065
  3. PREDNISOLONE [Suspect]
     Active Substance: PREDNISOLONE
     Dosage: UNK,(CHOP-REGIMEN)
     Route: 065
  4. METHOTREXATE [Suspect]
     Active Substance: METHOTREXATE
     Indication: T-cell lymphoma stage II
     Dosage: UNK (GRAALL 2003 REGIMEN)
     Route: 065
  5. METHOTREXATE [Suspect]
     Active Substance: METHOTREXATE
     Dosage: UNK, (SALVAGE CHEMOTHERAPY, HIGH DOSE)
     Route: 065
  6. ETOPOSIDE [Suspect]
     Active Substance: ETOPOSIDE
     Indication: T-cell lymphoma stage II
     Dosage: UNK (GRAALL 2003 REGIMEN)
     Route: 065
  7. ETOPOSIDE [Suspect]
     Active Substance: ETOPOSIDE
     Dosage: UNK, (ICE REGIMEN)
     Route: 065
  8. ETOPOSIDE [Suspect]
     Active Substance: ETOPOSIDE
     Dosage: UNK ,(ESHAP REGIMEN)
     Route: 065
  9. ETOPOSIDE [Suspect]
     Active Substance: ETOPOSIDE
     Dosage: UNK ,CONDITIONING REGIMEN)
     Route: 065
  10. CARBOPLATIN [Suspect]
     Active Substance: CARBOPLATIN
     Indication: T-cell lymphoma stage II
     Dosage: UNK, (ICE REGIMEN)
     Route: 065
  11. CISPLATIN [Suspect]
     Active Substance: CISPLATIN
     Indication: T-cell lymphoma stage II
     Dosage: UNK,(ESHAP REGIMEN)
     Route: 065
  12. DAUNORUBICIN [Suspect]
     Active Substance: DAUNORUBICIN
     Indication: T-cell lymphoma stage II
     Dosage: UNK, (GRAALL 2003 REGIMEN)
     Route: 065
  13. VINCRISTINE [Suspect]
     Active Substance: VINCRISTINE
     Indication: T-cell lymphoma stage II
     Dosage: UNK,(GRAALL 2003 REGIMEN)
     Route: 065
  14. VINCRISTINE [Suspect]
     Active Substance: VINCRISTINE
     Dosage: UNK,(CHOP-REGIMEN)
     Route: 065
  15. CYCLOPHOSPHAMIDE [Suspect]
     Active Substance: CYCLOPHOSPHAMIDE
     Indication: T-cell lymphoma stage II
     Dosage: UNK,(GRAALL 2003 REGIMEN)
     Route: 065
  16. CYCLOPHOSPHAMIDE [Suspect]
     Active Substance: CYCLOPHOSPHAMIDE
     Dosage: UNK,(CHOP-REGIMEN)
     Route: 065
  17. IDARUBICIN [Suspect]
     Active Substance: IDARUBICIN
     Indication: T-cell lymphoma stage II
     Dosage: UNK, (GRAALL 2003 REGIMEN)
     Route: 065
  18. MERCAPTOPURINE [Suspect]
     Active Substance: MERCAPTOPURINE
     Indication: T-cell lymphoma stage II
     Dosage: UNK, (GRAALL 2003 REGIMEN)
     Route: 065
  19. LENOGRASTIM [Suspect]
     Active Substance: LENOGRASTIM
     Indication: T-cell lymphoma stage II
     Dosage: UNK (GRAALL 2003 REGIMEN)
     Route: 065
  20. ASPARAGINASE [Suspect]
     Active Substance: ASPARAGINASE
     Indication: T-cell lymphoma stage II
     Dosage: UNK (GRAALL 2003 REGIMEN)
     Route: 065
  21. CYTARABINE [Suspect]
     Active Substance: CYTARABINE
     Indication: T-cell lymphoma stage II
     Dosage: UNK (GRAALL 2003 REGIMEN)
     Route: 065
  22. CYTARABINE [Suspect]
     Active Substance: CYTARABINE
     Dosage: UNK (SALVAGE CHEMOTHERAPY )
     Route: 065
  23. CYTARABINE [Suspect]
     Active Substance: CYTARABINE
     Dosage: UNK (ESHAP REGIMEN)
     Route: 065
  24. IFOSFAMIDE [Suspect]
     Active Substance: IFOSFAMIDE
     Indication: T-cell lymphoma stage II
     Dosage: UNK (ICE REGIMEN)
     Route: 065
  25. METHYLPREDNISOLONE [Suspect]
     Active Substance: METHYLPREDNISOLONE
     Indication: T-cell lymphoma stage II
     Dosage: UNK (ESHAP REGIMEN)
     Route: 065

REACTIONS (7)
  - Thrombocytopenia [Unknown]
  - Febrile neutropenia [Unknown]
  - Anaemia [Unknown]
  - Drug ineffective [Unknown]
  - Nausea [Unknown]
  - Vomiting [Unknown]
  - Off label use [Unknown]
